FAERS Safety Report 16032662 (Version 3)
Quarter: 2019Q3

REPORT INFORMATION
  Report Type: Report from Study
  Country: US (occurrence: US)
  Receive Date: 20190305
  Receipt Date: 20190807
  Transmission Date: 20191004
  Serious: Yes (Other)
  Sender: FDA-Public Use
  Company Number: PHEH2019US008743

PATIENT
  Sex: Male

DRUGS (1)
  1. AFINITOR [Suspect]
     Active Substance: EVEROLIMUS
     Indication: PARTIAL SEIZURES
     Dosage: 12 MG, QD
     Route: 048
     Dates: start: 20181110

REACTIONS (3)
  - Seizure [Unknown]
  - Abnormal behaviour [Unknown]
  - Asthenia [Unknown]
